FAERS Safety Report 5477096-1 (Version None)
Quarter: 2007Q4

REPORT INFORMATION
  Report Type: 
  Country: None (occurrence: None)
  Receive Date: 20071003
  Receipt Date: 20071003
  Transmission Date: 20080405
  Serious: No
  Sender: FDA-Public Use
  Company Number: None

PATIENT
  Age: 10 Year
  Sex: Male
  Weight: 45.3597 kg

DRUGS (1)
  1. SERTRALINE HCL [Suspect]
     Indication: ANXIETY DISORDER
     Dosage: 10 MG DAILY PO
     Route: 048
     Dates: start: 20070701, end: 20071002

REACTIONS (2)
  - DRUG ADMINISTRATION ERROR [None]
  - INCORRECT DOSE ADMINISTERED [None]
